FAERS Safety Report 12289800 (Version 1)
Quarter: 2016Q2

REPORT INFORMATION
  Report Type: Spontaneous
  Country: BR (occurrence: BR)
  Receive Date: 20160421
  Receipt Date: 20160421
  Transmission Date: 20160815
  Serious: Yes (Other)
  Sender: FDA-Public Use
  Company Number: PHHY2016BR053346

PATIENT
  Sex: Female
  Weight: 75 kg

DRUGS (1)
  1. FORASEQ [Suspect]
     Active Substance: BUDESONIDE\FORMOTEROL FUMARATE
     Indication: PRODUCT USED FOR UNKNOWN INDICATION
     Dosage: UNK UNK, Q12H
     Route: 055
     Dates: start: 2013

REACTIONS (4)
  - Arthralgia [Unknown]
  - Pain [Unknown]
  - Alopecia [Unknown]
  - Asthma [Unknown]

NARRATIVE: CASE EVENT DATE: 2013
